FAERS Safety Report 4803553-4 (Version None)
Quarter: 2005Q4

REPORT INFORMATION
  Report Type: 
  Country: None (occurrence: None)
  Receive Date: 20051019
  Receipt Date: 20051019
  Transmission Date: 20060501
  Serious: Yes (Life-Threatening)
  Sender: FDA-Public Use
  Company Number: US-BRISTOL-MYERS SQUIBB COMPANY-13150032

PATIENT
  Age: 48 Year
  Sex: Female

DRUGS (9)
  1. CYCLOPHOSPHAMIDE [Suspect]
     Indication: BREAST CANCER
     Dosage: INITIAL DOSE: 21-APR-2005
     Dates: start: 20050519, end: 20050519
  2. ADRIAMYCIN PFS [Suspect]
     Indication: BREAST CANCER
     Dosage: INITIAL DOSE: 21-APR-2005
     Dates: start: 20050519, end: 20050519
  3. PEGFILGRASTIM [Concomitant]
     Dates: end: 20050520
  4. ACETAMINOPHEN AND HYDROCODONE BITARTRATE [Concomitant]
  5. ONDANSETRON HCL [Concomitant]
  6. LORAZEPAM [Concomitant]
  7. PROMETHAZINE [Concomitant]
  8. DEXAMETHASONE [Concomitant]
  9. PALONOSETRON [Concomitant]

REACTIONS (1)
  - LEUKOPENIA [None]
